FAERS Safety Report 6318510-9 (Version None)
Quarter: 2009Q3

REPORT INFORMATION
  Report Type: 
  Country: None (occurrence: None)
  Receive Date: 20090821
  Receipt Date: 20090810
  Transmission Date: 20100115
  Serious: Yes (Hospitalization)
  Sender: FDA-Public Use
  Company Number: US-PFIZER INC-2007036820

PATIENT
  Sex: Female
  Weight: 96 kg

DRUGS (17)
  1. NAPROXEN [Suspect]
     Indication: OSTEOARTHRITIS
     Dosage: UNK
     Route: 048
     Dates: start: 20070405, end: 20070508
  2. BLINDED *NO SUBJECT DRUG [Suspect]
     Indication: OSTEOARTHRITIS
     Dosage: UNK
     Route: 048
     Dates: start: 20070405, end: 20070508
  3. BLINDED *PLACEBO [Suspect]
     Indication: OSTEOARTHRITIS
     Dosage: UNK
     Route: 048
     Dates: start: 20070405, end: 20070508
  4. BLINDED CELECOXIB [Suspect]
     Indication: OSTEOARTHRITIS
     Dosage: UNK
     Route: 048
     Dates: start: 20070405, end: 20070508
  5. IBUPROFEN [Suspect]
     Indication: OSTEOARTHRITIS
     Dosage: UNK
     Route: 048
     Dates: start: 20070405, end: 20070508
  6. NAPROXEN [Suspect]
     Dosage: UNK
     Route: 048
     Dates: start: 20070405, end: 20070508
  7. NEXIUM [Concomitant]
     Route: 048
     Dates: start: 20070404, end: 20070508
  8. ASPIRIN [Concomitant]
     Dosage: DAILY
     Route: 048
     Dates: start: 20041228
  9. PLAVIX [Concomitant]
     Dosage: DAILY
     Route: 048
     Dates: start: 20041228
  10. ATENOLOL [Concomitant]
     Dosage: DAILY
     Route: 048
     Dates: start: 20041228
  11. VALSARTAN [Concomitant]
     Dosage: DAILY
     Route: 048
     Dates: start: 19970101
  12. GLUCOPHAGE [Concomitant]
     Dosage: 3 X / A DAY
     Route: 048
     Dates: start: 19990101
  13. GLIPIZIDE [Concomitant]
     Dosage: 2 X / A DAY
     Route: 048
     Dates: start: 19990101
  14. ZETIA [Concomitant]
     Dosage: DAILY
     Route: 048
     Dates: start: 20050420
  15. NIASPAN [Concomitant]
     Dosage: DAILY
     Route: 048
     Dates: start: 20050420
  16. CALTRATE [Concomitant]
     Dosage: 1 TAB,DAILY
     Route: 048
     Dates: start: 20040101
  17. NITROGLYCERIN [Concomitant]
     Dosage: AS NEEDED
     Route: 048
     Dates: start: 20051201

REACTIONS (1)
  - CORONARY ARTERY DISEASE [None]
